FAERS Safety Report 20311180 (Version 1)
Quarter: 2022Q1

REPORT INFORMATION
  Report Type: Spontaneous
  Country: CA (occurrence: CA)
  Receive Date: 20220107
  Receipt Date: 20220107
  Transmission Date: 20220423
  Serious: Yes (Death, Hospitalization, Other)
  Sender: FDA-Public Use
  Company Number: CA-NAPPMUNDI-GBR-2022-0094144

PATIENT
  Age: 57 Year
  Sex: Female

DRUGS (3)
  1. MORPHINE SULFATE [Suspect]
     Active Substance: MORPHINE SULFATE
     Indication: Product used for unknown indication
     Dosage: UNK
     Route: 065
  2. VOTRIENT [Suspect]
     Active Substance: PAZOPANIB HYDROCHLORIDE
     Indication: Sarcoma
     Dosage: 600 MG, DAILY
     Route: 065
  3. EXEMESTANE [Concomitant]
     Active Substance: EXEMESTANE
     Route: 065

REACTIONS (15)
  - Malignant neoplasm progression [Fatal]
  - Cough [Fatal]
  - Dry throat [Fatal]
  - Eating disorder [Fatal]
  - Erythema [Fatal]
  - Feeling hot [Fatal]
  - Infection [Fatal]
  - Nasopharyngitis [Fatal]
  - Nausea [Fatal]
  - Pain [Fatal]
  - Pleural effusion [Fatal]
  - Swelling [Fatal]
  - Throat irritation [Fatal]
  - Tongue discomfort [Fatal]
  - Vomiting [Fatal]
